FAERS Safety Report 15742001 (Version 3)
Quarter: 2019Q1

REPORT INFORMATION
  Report Type: Spontaneous
  Country: JP (occurrence: JP)
  Receive Date: 20181219
  Receipt Date: 20190207
  Transmission Date: 20190417
  Serious: Yes (Hospitalization, Other)
  Sender: FDA-Public Use
  Company Number: JP-BAUSCH-BL-2018-035426

PATIENT
  Age: 77 Year
  Sex: Female

DRUGS (3)
  1. MIKELAN LA OPHTHALMIC SOLUTION 2 PERCENT [Suspect]
     Active Substance: CARTEOLOL HYDROCHLORIDE
     Indication: PRODUCT USED FOR UNKNOWN INDICATION
     Dosage: BOTH EYES
     Route: 047
  2. MUCOSTA OPHTHALMIC SOLUTION [Suspect]
     Active Substance: REBAMIPIDE
     Dosage: BOTH EYES
     Route: 047
     Dates: start: 20180220, end: 20180326
  3. MUCOSTA OPHTHALMIC SOLUTION [Suspect]
     Active Substance: REBAMIPIDE
     Indication: DRY EYE
     Dosage: BOTH EYES
     Route: 047
     Dates: end: 20180109

REACTIONS (2)
  - Dacryocystitis [Recovering/Resolving]
  - Dacryocystitis [Recovering/Resolving]

NARRATIVE: CASE EVENT DATE: 201712
